FAERS Safety Report 7227582-9 (Version None)
Quarter: 2011Q1

REPORT INFORMATION
  Report Type: 
  Country: None (occurrence: None)
  Receive Date: 20110114
  Receipt Date: 20110106
  Transmission Date: 20110831
  Serious: Yes (Other)
  Sender: FDA-Public Use
  Company Number: FR-JNJFOC-20110101103

PATIENT
  Age: 37 Year
  Sex: Male

DRUGS (3)
  1. TAVANIC [Suspect]
     Indication: LUNG DISORDER
     Route: 065
  2. ROCEPHIN [Suspect]
     Indication: LUNG DISORDER
     Route: 065
  3. ASPIRIN [Concomitant]
     Indication: THROMBOSIS PROPHYLAXIS
     Route: 048

REACTIONS (4)
  - HYPERKALAEMIA [None]
  - URINE POTASSIUM DECREASED [None]
  - HYPOALDOSTERONISM [None]
  - RENAL TUBULAR DISORDER [None]
